FAERS Safety Report 6709494-X (Version None)
Quarter: 2010Q2

REPORT INFORMATION
  Report Type: 
  Country: None (occurrence: None)
  Receive Date: 20100504
  Receipt Date: 20100419
  Transmission Date: 20101027
  Serious: Yes (Other)
  Sender: FDA-Public Use
  Company Number: US-BAYER-201019868NA

PATIENT
  Age: 51 Year
  Sex: Female

DRUGS (1)
  1. MIRENA [Suspect]
     Indication: MENOPAUSE
     Dosage: FREQUENCY CONTINUOUS
     Route: 015
     Dates: start: 20100409

REACTIONS (6)
  - BLOOD PRESSURE INCREASED [None]
  - DEPRESSION [None]
  - DIZZINESS [None]
  - HYPERTENSION [None]
  - PALPITATIONS [None]
  - PANIC ATTACK [None]
